FAERS Safety Report 6112936-4 (Version None)
Quarter: 2009Q1

REPORT INFORMATION
  Report Type: 
  Country: None (occurrence: None)
  Receive Date: 20090304
  Receipt Date: 20090304
  Transmission Date: 20090719
  Serious: No
  Sender: FDA-Public Use
  Company Number: None

PATIENT

DRUGS (1)
  1. ROACCUTANE [Suspect]

REACTIONS (14)
  - ACNE PUSTULAR [None]
  - ANXIETY [None]
  - CONDITION AGGRAVATED [None]
  - DEPRESSION [None]
  - DRY SKIN [None]
  - HAIR GROWTH ABNORMAL [None]
  - LIPIDS INCREASED [None]
  - MALAISE [None]
  - MENTAL DISORDER [None]
  - PAIN OF SKIN [None]
  - SCAR [None]
  - SKIN IRRITATION [None]
  - SKIN SWELLING [None]
  - TREATMENT NONCOMPLIANCE [None]
